FAERS Safety Report 9657032 (Version 1)
Quarter: 2013Q4

REPORT INFORMATION
  Report Type: Spontaneous
  Country: US (occurrence: None)
  Receive Date: 20131029
  Receipt Date: 20131029
  Transmission Date: 20140711
  Serious: Yes (Life-Threatening, Hospitalization)
  Sender: FDA-Public Use
  Company Number: None

PATIENT
  Age: 19 Year
  Sex: Female
  Weight: 78 kg

DRUGS (1)
  1. NORGESTREL/ETHINYL ESTRADIOL [Suspect]
     Indication: CONTRACEPTION
     Dosage: 1 PILL QD ORAL
     Route: 048

REACTIONS (9)
  - Arthralgia [None]
  - Haemoptysis [None]
  - Pleuritic pain [None]
  - Chest pain [None]
  - Dyspnoea [None]
  - Local swelling [None]
  - Pulmonary embolism [None]
  - Pulmonary infarction [None]
  - Pulmonary haemorrhage [None]
